FAERS Safety Report 21142397 (Version 1)
Quarter: 2022Q3

REPORT INFORMATION
  Report Type: Spontaneous
  Country: US (occurrence: US)
  Receive Date: 20220728
  Receipt Date: 20220728
  Transmission Date: 20221027
  Serious: Yes (Other)
  Sender: FDA-Public Use
  Company Number: US-MYLANLABS-2022M1081443

PATIENT
  Age: 43 Year
  Sex: Male

DRUGS (5)
  1. GEMCITABINE [Suspect]
     Active Substance: GEMCITABINE
     Indication: Transitional cell carcinoma
     Dosage: UNK
     Route: 065
  2. CISPLATIN [Suspect]
     Active Substance: CISPLATIN
     Indication: Transitional cell carcinoma
     Dosage: UNK
     Route: 065
  3. ATEZOLIZUMAB [Suspect]
     Active Substance: ATEZOLIZUMAB
     Indication: Transitional cell carcinoma
     Dosage: UNK, CYCLE, RECEIVED 4 CYCLES OF ATEZOLIZUMAB
     Route: 065
  4. ENFORTUMAB VEDOTIN [Suspect]
     Active Substance: ENFORTUMAB VEDOTIN
     Indication: Transitional cell carcinoma
     Dosage: UNK, CYCLE, INFUSION
     Route: 065
  5. NEO PV 01 [Concomitant]
     Indication: Transitional cell carcinoma
     Dosage: UNK
     Route: 065

REACTIONS (2)
  - Chronic inflammatory demyelinating polyradiculoneuropathy [Recovering/Resolving]
  - Hypertransaminasaemia [Unknown]
